FAERS Safety Report 12616901 (Version 2)
Quarter: 2016Q3

REPORT INFORMATION
  Report Type: Report from Study
  Country: CA (occurrence: CA)
  Receive Date: 20160802
  Receipt Date: 20160929
  Transmission Date: 20161109
  Serious: Yes (Hospitalization)
  Sender: FDA-Public Use
  Company Number: PHHY2016CA104108

PATIENT
  Age: 79 Year
  Sex: Female
  Weight: 71.5 kg

DRUGS (4)
  1. KEFLEX [Suspect]
     Active Substance: CEPHALEXIN
     Indication: GROIN INFECTION
     Dosage: UNK
     Route: 065
     Dates: start: 20160624
  2. KEFLEX [Suspect]
     Active Substance: CEPHALEXIN
     Indication: INGUINAL MASS
  3. VITAMIN D [Suspect]
     Active Substance: CHOLECALCIFEROL
     Indication: SUPPLEMENTATION THERAPY
     Dosage: UNK
     Route: 048
     Dates: start: 2014
  4. EXJADE [Suspect]
     Active Substance: DEFERASIROX
     Indication: IRON OVERLOAD
     Dosage: UNK
     Route: 048
     Dates: start: 2014

REACTIONS (4)
  - Electrocardiogram abnormal [Unknown]
  - Myocardial ischaemia [Unknown]
  - Ventricular extrasystoles [Unknown]
  - Urinary tract infection [Not Recovered/Not Resolved]

NARRATIVE: CASE EVENT DATE: 20160719
